FAERS Safety Report 6324115-6 (Version None)
Quarter: 2009Q3

REPORT INFORMATION
  Report Type: 
  Country: None (occurrence: None)
  Receive Date: 20090824
  Receipt Date: 20090429
  Transmission Date: 20100115
  Serious: No
  Sender: FDA-Public Use
  Company Number: US-ABBOTT-09P-163-0569551-00

PATIENT
  Sex: Male
  Weight: 81.72 kg

DRUGS (8)
  1. NIASPAN [Suspect]
     Indication: BLOOD CHOLESTEROL INCREASED
     Dates: start: 20080101, end: 20090320
  2. NIASPAN [Suspect]
     Dates: start: 20090403
  3. PLAVIX [Suspect]
     Indication: ARTERIAL OCCLUSIVE DISEASE
     Dates: start: 20080101, end: 20090320
  4. PLAVIX [Suspect]
     Dates: start: 20090403
  5. ATENOLOL [Concomitant]
     Indication: CARDIAC DISORDER
     Dosage: UNKOWN
  6. CARVEDILOL [Concomitant]
     Indication: CARDIAC DISORDER
  7. LIPITOR [Concomitant]
     Indication: ARTERIAL OCCLUSIVE DISEASE
     Dosage: UNKNOWN
  8. LISINOPRIL [Concomitant]
     Indication: HYPERTENSION
     Dosage: UNKNOWN

REACTIONS (3)
  - AGITATION [None]
  - IRRITABILITY [None]
  - MOOD ALTERED [None]
